FAERS Safety Report 10063065 (Version 1)
Quarter: 2014Q2

REPORT INFORMATION
  Report Type: Spontaneous
  Country: DE (occurrence: DE)
  Receive Date: 20140407
  Receipt Date: 20140407
  Transmission Date: 20141212
  Serious: Yes (Congenital Anomaly)
  Sender: FDA-Public Use
  Company Number: DE-TEVA-472669GER

PATIENT
  Age: 0 Year
  Sex: Male

DRUGS (2)
  1. VENLAFAXINE [Suspect]
     Route: 064
  2. FOLIO FORTE [Concomitant]
     Route: 064

REACTIONS (1)
  - Talipes [Recovering/Resolving]
